FAERS Safety Report 20680542 (Version 1)
Quarter: 2022Q2

REPORT INFORMATION
  Report Type: Spontaneous
  Country: US (occurrence: None)
  Receive Date: 20220405
  Receipt Date: 20220405
  Transmission Date: 20220720
  Serious: No
  Sender: FDA-Public Use
  Company Number: None

PATIENT
  Age: 77 Year
  Sex: Male
  Weight: 100 kg

DRUGS (2)
  1. WARFARIN SODIUM [Suspect]
     Active Substance: WARFARIN SODIUM
     Indication: Cardiac operation
     Dosage: FREQUENCY : DAILY;?
     Route: 048
     Dates: start: 19960101
  2. WARFARIN SODIUM [Suspect]
     Active Substance: WARFARIN SODIUM
     Indication: Vascular stent insertion

REACTIONS (4)
  - Lower gastrointestinal haemorrhage [None]
  - Anaemia [None]
  - Gastrointestinal arteriovenous malformation [None]
  - Therapy interrupted [None]

NARRATIVE: CASE EVENT DATE: 20210624
